FAERS Safety Report 6026372-2 (Version None)
Quarter: 2009Q1

REPORT INFORMATION
  Report Type: 
  Country: None (occurrence: None)
  Receive Date: 20090102
  Receipt Date: 20081223
  Transmission Date: 20090719
  Serious: Yes (Hospitalization, Other)
  Sender: FDA-Public Use
  Company Number: PHHY2008GB23823

PATIENT
  Sex: Male

DRUGS (2)
  1. CLOZARIL [Suspect]
     Indication: SCHIZOPHRENIA
     Dosage: UNK
     Dates: start: 20080911, end: 20081015
  2. ANTIBIOTICS [Concomitant]
     Dosage: UNK

REACTIONS (12)
  - CLOSTRIDIAL INFECTION [None]
  - COLON OPERATION [None]
  - COLOSTOMY [None]
  - DEHYDRATION [None]
  - GASTROINTESTINAL INFECTION [None]
  - MECHANICAL VENTILATION [None]
  - MEGACOLON [None]
  - NEUTROPHIL COUNT INCREASED [None]
  - PLATELET COUNT DECREASED [None]
  - SEDATION [None]
  - UNRESPONSIVE TO STIMULI [None]
  - WHITE BLOOD CELL COUNT INCREASED [None]
